FAERS Safety Report 19657522 (Version 1)
Quarter: 2021Q3

REPORT INFORMATION
  Report Type: Other
  Country: IL (occurrence: IL)
  Receive Date: 20210804
  Receipt Date: 20210804
  Transmission Date: 20211014
  Serious: Yes (Hospitalization, Other)
  Sender: FDA-Public Use
  Company Number: IL-INVATECH-000111

PATIENT
  Age: 47 Year
  Sex: Female

DRUGS (5)
  1. TRAMADEX [Concomitant]
     Active Substance: TRAMADOL
     Indication: AFTERBIRTH PAIN
  2. METAMIZOLE SODIUM [Concomitant]
     Active Substance: METAMIZOLE SODIUM
     Indication: AFTERBIRTH PAIN
  3. PARACETAMOL [Concomitant]
     Active Substance: ACETAMINOPHEN
     Indication: AFTERBIRTH PAIN
  4. LOW MOLECULAR WEIGHT HEPARIN [Concomitant]
     Active Substance: UNSPECIFIED INGREDIENT
     Indication: THROMBOSIS PROPHYLAXIS
  5. LABETALOL [Suspect]
     Active Substance: LABETALOL\LABETALOL HYDROCHLORIDE
     Indication: HYPERTENSION
     Dosage: ORAL LABETALOL 200MG 3/DAY STARTED ON POD 1.
     Route: 048

REACTIONS (5)
  - Hypertensive crisis [Recovered/Resolved]
  - Haemodynamic instability [Recovered/Resolved]
  - Diastolic dysfunction [Recovered/Resolved]
  - Condition aggravated [Recovered/Resolved]
  - Pleural effusion [Recovered/Resolved]
